FAERS Safety Report 16476594 (Version 2)
Quarter: 2019Q3

REPORT INFORMATION
  Report Type: Spontaneous
  Country: PT (occurrence: PT)
  Receive Date: 20190626
  Receipt Date: 20190709
  Transmission Date: 20191004
  Serious: Yes (Hospitalization, Other)
  Sender: FDA-Public Use
  Company Number: PT-MYLANLABS-2019M1058231

PATIENT
  Age: 55 Year
  Sex: Male

DRUGS (2)
  1. LINAGLIPTIN [Concomitant]
     Active Substance: LINAGLIPTIN
     Dosage: UNK
  2. METFORMIN [Suspect]
     Active Substance: METFORMIN HYDROCHLORIDE
     Indication: TYPE 2 DIABETES MELLITUS
     Dosage: 2 GRAM, QD

REACTIONS (14)
  - Fatigue [Recovering/Resolving]
  - Poikilocytosis [Recovering/Resolving]
  - Jaundice [Recovering/Resolving]
  - Microangiopathy [Recovering/Resolving]
  - Leukopenia [Recovering/Resolving]
  - Condition aggravated [Recovering/Resolving]
  - Thrombocytopenia [Recovering/Resolving]
  - Anaemia [Recovering/Resolving]
  - Weight decreased [Recovering/Resolving]
  - Thrombotic microangiopathy [Recovering/Resolving]
  - Varicose vein [Recovering/Resolving]
  - Vitamin B12 deficiency [Recovering/Resolving]
  - Asthenia [Recovering/Resolving]
  - Pallor [Recovering/Resolving]
